FAERS Safety Report 23021196 (Version 1)
Quarter: 2023Q4

REPORT INFORMATION
  Report Type: Spontaneous
  Country: JP (occurrence: None)
  Receive Date: 20231003
  Receipt Date: 20231003
  Transmission Date: 20240110
  Serious: Yes (Other)
  Sender: FDA-Public Use
  Company Number: 2023A221211

PATIENT
  Age: 57 Year
  Sex: Female

DRUGS (4)
  1. LYNPARZA [Suspect]
     Active Substance: OLAPARIB
     Indication: Ovarian cancer recurrent
     Dosage: DOSE UNKNOWN
     Route: 048
  2. LYNPARZA [Suspect]
     Active Substance: OLAPARIB
     Indication: Ovarian cancer recurrent
     Dosage: DOSE UNKNOWN
     Route: 048
  3. PACLITAXEL [Concomitant]
     Active Substance: PACLITAXEL
     Indication: Ovarian cancer recurrent
     Dosage: DOSE UNKNOWN, SIX COURSES OF TP THERAPY (PACLITAXEL + CISPLATIN)
  4. CISPLATIN [Concomitant]
     Active Substance: CISPLATIN
     Indication: Ovarian cancer recurrent
     Dosage: DOSE UNKNOWN, SIX COURSES OF TP THERAPY (PACLITAXEL + CISPLATIN)

REACTIONS (2)
  - Ovarian cancer recurrent [Unknown]
  - Metastases to lymph nodes [Unknown]
